FAERS Safety Report 5575422-6 (Version None)
Quarter: 2007Q4

REPORT INFORMATION
  Report Type: 
  Country: None (occurrence: None)
  Receive Date: 20071227
  Receipt Date: 20071217
  Transmission Date: 20080405
  Serious: Yes (Other)
  Sender: FDA-Public Use
  Company Number: IT-BOEHRINGER INGELHEIM PHARMACEUTICALS, INC.-2007-DE-07426GD

PATIENT
  Age: 58 Year
  Sex: Male

DRUGS (7)
  1. CLONIDINE [Suspect]
     Indication: BLOOD PRESSURE INCREASED
  2. SODIUM NITROPRUSSIDE [Suspect]
     Indication: BLOOD PRESSURE INCREASED
  3. URAPIDIL [Suspect]
     Indication: BLOOD PRESSURE INCREASED
     Dosage: REPEATED BOLUSES OF 10 MG (3-4 BOLUSES WITH AN INTERVAL OF 15 MIN)
  4. FENOLDOPAM [Suspect]
     Indication: BLOOD PRESSURE INCREASED
     Dosage: 0.045 MCG/KG/MIN
     Route: 042
  5. MIDAZOLAM HCL [Concomitant]
     Route: 042
  6. FENTANYL [Concomitant]
     Route: 042
  7. MEPIVACAINE HCL [Concomitant]
     Indication: LOCAL ANAESTHESIA
     Dosage: 2%-10 ML

REACTIONS (7)
  - AGITATION [None]
  - AORTIC ANEURYSM [None]
  - DRUG INEFFECTIVE [None]
  - HALLUCINATION [None]
  - OXYGEN SATURATION DECREASED [None]
  - RENAL FAILURE [None]
  - SPEECH DISORDER [None]
